FAERS Safety Report 13531275 (Version 1)
Quarter: 2017Q2

REPORT INFORMATION
  Report Type: Spontaneous
  Country: US (occurrence: US)
  Receive Date: 20170510
  Receipt Date: 20170510
  Transmission Date: 20170830
  Serious: Yes (Other)
  Sender: FDA-Public Use
  Company Number: None

PATIENT
  Age: 62 Year
  Sex: Female
  Weight: 69.01 kg

DRUGS (27)
  1. TRIHEXYPHENIDYL [Concomitant]
     Active Substance: TRIHEXYPHENIDYL
  2. SYMBICORT [Concomitant]
     Active Substance: BUDESONIDE\FORMOTEROL FUMARATE DIHYDRATE
  3. IBUPROFEN. [Concomitant]
     Active Substance: IBUPROFEN
  4. ALENDRONATE [Concomitant]
     Active Substance: ALENDRONATE SODIUM
  5. MONTELUKAST [Concomitant]
     Active Substance: MONTELUKAST SODIUM
  6. ESCITALOPRAM [Concomitant]
     Active Substance: ESCITALOPRAM OXALATE
  7. BACLOFEN. [Concomitant]
     Active Substance: BACLOFEN
  8. LEVOTHYROXINE. [Concomitant]
     Active Substance: LEVOTHYROXINE
  9. CALCIUM [Concomitant]
     Active Substance: CALCIUM
  10. OXYCARBAZEPINE [Concomitant]
     Active Substance: OXCARBAZEPINE
  11. VISPERIDONE [Concomitant]
  12. ALBUTEROL. [Concomitant]
     Active Substance: ALBUTEROL
  13. RELPAX [Concomitant]
     Active Substance: ELETRIPTAN HYDROBROMIDE
  14. MAGNESIUM [Concomitant]
     Active Substance: MAGNESIUM
  15. VITAMIN B12 [Concomitant]
     Active Substance: CYANOCOBALAMIN
  16. BUSPIRONE [Concomitant]
     Active Substance: BUSPIRONE HYDROCHLORIDE
  17. FISH OIL [Concomitant]
     Active Substance: FISH OIL
  18. SPIRIVA [Concomitant]
     Active Substance: TIOTROPIUM BROMIDE MONOHYDRATE
  19. TOPIRAMATE. [Concomitant]
     Active Substance: TOPIRAMATE
  20. NITROGLYCERINE [Concomitant]
     Active Substance: NITROGLYCERIN
  21. PROPANOLOL [Concomitant]
     Active Substance: PROPRANOLOL HYDROCHLORIDE
  22. LYRICA [Concomitant]
     Active Substance: PREGABALIN
  23. BUPRION [Suspect]
     Active Substance: BUPROPION HYDROCHLORIDE
     Indication: DEPRESSION
     Route: 048
     Dates: start: 20150112, end: 20170427
  24. HYDROCORTISONE. [Concomitant]
     Active Substance: HYDROCORTISONE
  25. MULTI VITANS [Concomitant]
  26. PROMETHAZINE [Concomitant]
     Active Substance: PROMETHAZINE\PROMETHAZINE HYDROCHLORIDE
  27. TYLENOL4 [Concomitant]

REACTIONS (1)
  - Amnesia [None]

NARRATIVE: CASE EVENT DATE: 20160801
